FAERS Safety Report 7456703-8 (Version None)
Quarter: 2011Q2

REPORT INFORMATION
  Report Type: 
  Country: None (occurrence: None)
  Receive Date: 20110503
  Receipt Date: 20100513
  Transmission Date: 20111010
  Serious: No
  Sender: FDA-Public Use
  Company Number: US-SANOFI-AVENTIS-2010SA028688

PATIENT
  Age: 62 Year
  Sex: Male

DRUGS (4)
  1. APIDRA [Suspect]
     Dosage: AS NEEDED
     Route: 058
     Dates: start: 20080101
  2. LANTUS [Suspect]
     Dosage: DOSE:40 UNIT(S)
     Route: 058
     Dates: start: 20080101
  3. SOLOSTAR [Suspect]
     Dates: start: 20080101
  4. SOLOSTAR [Suspect]
     Dates: start: 20080101

REACTIONS (2)
  - HERNIA [None]
  - BLOOD GLUCOSE INCREASED [None]
